FAERS Safety Report 7434915-7 (Version None)
Quarter: 2011Q2

REPORT INFORMATION
  Report Type: 
  Country: None (occurrence: None)
  Receive Date: 20110425
  Receipt Date: 20110418
  Transmission Date: 20111010
  Serious: Yes (Hospitalization, Other)
  Sender: FDA-Public Use
  Company Number: JP-CELGENEUS-087-21880-10111724

PATIENT
  Sex: Male
  Weight: 60.4 kg

DRUGS (10)
  1. LENADEX [Suspect]
     Dosage: 40 MILLIGRAM
     Route: 048
     Dates: start: 20101006, end: 20101009
  2. FENTANYL CITRATE [Concomitant]
     Indication: MULTIPLE MYELOMA
     Dosage: 80 MILLIGRAM
     Route: 062
     Dates: start: 20100928, end: 20101109
  3. WARFARIN [Concomitant]
     Indication: PROPHYLAXIS
     Dosage: 1.5 MILLIGRAM
     Route: 048
     Dates: start: 20100928, end: 20101109
  4. FUROSEMIDE [Concomitant]
     Indication: MULTIPLE MYELOMA
     Dosage: 20 MILLIGRAM
     Route: 048
     Dates: start: 20100928, end: 20101109
  5. LENADEX [Suspect]
     Dosage: 40 MILLIGRAM
     Route: 048
     Dates: start: 20101014, end: 20101017
  6. AMLODIPINE [Concomitant]
     Indication: HYPERTENSION
     Dosage: 2.5 MILLIGRAM
     Route: 048
     Dates: start: 20100928, end: 20101109
  7. REVLIMID [Suspect]
     Indication: MULTIPLE MYELOMA
     Dosage: 10 MILLIGRAM
     Route: 048
     Dates: start: 20100928, end: 20101018
  8. LENADEX [Suspect]
     Indication: MULTIPLE MYELOMA
     Dosage: 40 MILLIGRAM
     Route: 048
     Dates: start: 20100928, end: 20101001
  9. NARCOTIC [Concomitant]
     Route: 065
  10. PREDONINE [Concomitant]
     Indication: MULTIPLE MYELOMA
     Dosage: 5 MILLIGRAM
     Route: 048
     Dates: start: 20100928, end: 20101109

REACTIONS (5)
  - ANAEMIA [None]
  - DEMENTIA [None]
  - DELIRIUM [None]
  - THROMBOCYTOPENIA [None]
  - PYREXIA [None]
